FAERS Safety Report 25787198 (Version 1)
Quarter: 2025Q3

REPORT INFORMATION
  Report Type: Spontaneous
  Country: US (occurrence: None)
  Receive Date: 20250910
  Receipt Date: 20250910
  Transmission Date: 20251021
  Serious: Yes (Hospitalization, Other)
  Sender: FDA-CTU
  Company Number: None

PATIENT
  Age: 34 Year
  Sex: Female
  Weight: 157.5 kg

DRUGS (5)
  1. VYKAT XR [Suspect]
     Active Substance: DIAZOXIDE CHOLINE
     Indication: Hyperphagia
     Dates: start: 20250811, end: 20250908
  2. ATORVASTATIN [Concomitant]
     Active Substance: ATORVASTATIN
  3. PROGESTERONE [Concomitant]
     Active Substance: PROGESTERONE
  4. SERTRALINE [Concomitant]
     Active Substance: SERTRALINE HYDROCHLORIDE
  5. metformin hydroxyzine [Concomitant]

REACTIONS (7)
  - Weight increased [None]
  - Peripheral swelling [None]
  - Abdominal distension [None]
  - Snoring [None]
  - Extrasystoles [None]
  - Pulmonary oedema [None]
  - Cardiomegaly [None]

NARRATIVE: CASE EVENT DATE: 20250908
